FAERS Safety Report 15626217 (Version 1)
Quarter: 2018Q4

REPORT INFORMATION
  Report Type: Spontaneous
  Country: US (occurrence: US)
  Receive Date: 20181116
  Receipt Date: 20181116
  Transmission Date: 20190205
  Serious: Yes (Other)
  Sender: FDA-Public Use
  Company Number: None

PATIENT
  Age: 33 Year
  Sex: Female
  Weight: 63.45 kg

DRUGS (2)
  1. MYLAN GLATIRAMER ACETATE [Suspect]
     Active Substance: GLATIRAMER ACETATE
     Indication: MULTIPLE SCLEROSIS
     Dosage: ?          QUANTITY:1 INJECTION(S);OTHER FREQUENCY:3 TIMES WEEKLY;?
     Route: 058
     Dates: start: 20181109, end: 20181116
  2. VITAMIN D [Concomitant]
     Active Substance: CHOLECALCIFEROL

REACTIONS (11)
  - Syncope [None]
  - Headache [None]
  - Urticaria [None]
  - Back pain [None]
  - Chills [None]
  - Retching [None]
  - Diarrhoea [None]
  - Swelling face [None]
  - Muscle spasms [None]
  - Skin burning sensation [None]
  - Hyperhidrosis [None]

NARRATIVE: CASE EVENT DATE: 20181116
